FAERS Safety Report 24335144 (Version 2)
Quarter: 2024Q3

REPORT INFORMATION
  Report Type: Report from Study
  Country: IN (occurrence: IN)
  Receive Date: 20240918
  Receipt Date: 20240927
  Transmission Date: 20241017
  Serious: Yes (Other)
  Sender: NOVARTIS
  Company Number: IN-002147023-NVSC2024IN184163

PATIENT
  Age: 56 Year
  Sex: Male
  Weight: 82.2 kg

DRUGS (3)
  1. CERTICAN [Suspect]
     Active Substance: EVEROLIMUS
     Indication: Liver transplant
     Dosage: 2 MG, BID
     Route: 048
  2. MYFORTIC [Suspect]
     Active Substance: MYCOPHENOLATE SODIUM
     Indication: Liver transplant
     Dosage: 360 MG, TID (1080 MG, OD)
     Route: 048
  3. TACROLIMUS [Suspect]
     Active Substance: TACROLIMUS
     Indication: Liver transplant
     Dosage: 1 MG, BID
     Route: 048

REACTIONS (10)
  - Hepatocellular carcinoma [Unknown]
  - Hepatic cirrhosis [Unknown]
  - Ascites [Unknown]
  - Volvulus of small bowel [Unknown]
  - Liver disorder [Unknown]
  - Hypertension [Unknown]
  - Product use issue [Unknown]
  - Pleural effusion [Unknown]
  - Abdominal distension [Unknown]
  - Peristalsis visible [Unknown]

NARRATIVE: CASE EVENT DATE: 20240830
